FAERS Safety Report 18468173 (Version 1)
Quarter: 2020Q4

REPORT INFORMATION
  Report Type: Report from Study
  Country: US (occurrence: US)
  Receive Date: 20201105
  Receipt Date: 20201105
  Transmission Date: 20210114
  Serious: Yes (Hospitalization)
  Sender: FDA-Public Use
  Company Number: US-EISAI MEDICAL RESEARCH-EC-2020-083273

PATIENT
  Age: 72 Year
  Sex: Male
  Weight: 104.32 kg

DRUGS (25)
  1. AMLODIPINE [Concomitant]
     Active Substance: AMLODIPINE BESYLATE
  2. GABAPENTIN. [Concomitant]
     Active Substance: GABAPENTIN
  3. LABETALOL HCL [Concomitant]
     Active Substance: LABETALOL HYDROCHLORIDE
  4. PRESERVISION AREDS [Concomitant]
     Active Substance: MINERALS\VITAMINS
  5. LENVIMA [Suspect]
     Active Substance: LENVATINIB
     Route: 048
     Dates: start: 2019, end: 202009
  6. ATORVASTATIN CALCIUM. [Concomitant]
     Active Substance: ATORVASTATIN CALCIUM
  7. AMOXIL [Concomitant]
     Active Substance: AMOXICILLIN
  8. LOVENOX [Concomitant]
     Active Substance: ENOXAPARIN SODIUM
  9. PROSTAT [Concomitant]
  10. MULTIVITAMINS [Concomitant]
     Active Substance: VITAMINS
  11. LOMOTIL [Concomitant]
     Active Substance: ATROPINE SULFATE\DIPHENOXYLATE HYDROCHLORIDE
  12. CHLORTHALIDONE. [Concomitant]
     Active Substance: CHLORTHALIDONE
  13. LENVIMA [Suspect]
     Active Substance: LENVATINIB
     Indication: THYROID CANCER
     Route: 048
     Dates: start: 20190109, end: 20190620
  14. VALSARTAN. [Concomitant]
     Active Substance: VALSARTAN
  15. PLAVIX [Concomitant]
     Active Substance: CLOPIDOGREL BISULFATE
  16. CALCIUM [Concomitant]
     Active Substance: CALCIUM
  17. PRESERVISION AREDS [Concomitant]
     Active Substance: MINERALS\VITAMINS
  18. LEVOTHYROXINE. [Concomitant]
     Active Substance: LEVOTHYROXINE
  19. METOPROLOL. [Concomitant]
     Active Substance: METOPROLOL
  20. SYNTHROID [Concomitant]
     Active Substance: LEVOTHYROXINE SODIUM
  21. PEPCID [Concomitant]
     Active Substance: FAMOTIDINE
  22. HYDROCHLOROTHIAZIDE. [Concomitant]
     Active Substance: HYDROCHLOROTHIAZIDE
  23. VITAMIN D3 [Concomitant]
     Active Substance: CHOLECALCIFEROL
  24. TRAMADOL. [Concomitant]
     Active Substance: TRAMADOL
  25. PRAMIPEXOLE DIHYDROCHLORIDE. [Concomitant]
     Active Substance: PRAMIPEXOLE DIHYDROCHLORIDE

REACTIONS (1)
  - Dehydration [Recovering/Resolving]

NARRATIVE: CASE EVENT DATE: 202009
